FAERS Safety Report 4214622 (Version 4)
Quarter: 2020Q3

REPORT INFORMATION
  Report Type: Report from Study
  Country: US (occurrence: US)
  Receive Date: 20040924
  Receipt Date: 20050214
  Transmission Date: 20201104
  Serious: Yes (Hospitalization)
  Sender: FDA-Public Use
  Company Number: US-JNJFOC-20040906120

PATIENT
  Age: 70 Year
  Sex: Female

DRUGS (18)
  1. INFLIXIMAB [Suspect]
     Active Substance: INFLIXIMAB
     Route: 042
  2. COMBIVENT [Concomitant]
     Active Substance: ALBUTEROL SULFATE\IPRATROPIUM BROMIDE
     Route: 055
  3. COMBIVENT [Concomitant]
     Active Substance: ALBUTEROL SULFATE\IPRATROPIUM BROMIDE
     Route: 055
  4. ALBUTEROL. [Concomitant]
     Active Substance: ALBUTEROL
     Route: 055
  5. MICARDIS [Concomitant]
     Active Substance: TELMISARTAN
     Route: 049
  6. OCTONAL [Concomitant]
     Route: 049
  7. INFLIXIMAB [Suspect]
     Active Substance: INFLIXIMAB
     Route: 042
  8. INFLIXIMAB [Suspect]
     Active Substance: INFLIXIMAB
     Route: 042
  9. HYDROCHLOROTHIAZIDE. [Concomitant]
     Active Substance: HYDROCHLOROTHIAZIDE
     Route: 049
  10. ASPIRIN. [Concomitant]
     Active Substance: ASPIRIN
     Route: 049
  11. TIMOLOL MALEATE. [Concomitant]
     Active Substance: TIMOLOL MALEATE
     Route: 049
  12. XALATAN [Concomitant]
     Active Substance: LATANOPROST
  13. MILK OF MAGNESIA [Concomitant]
     Active Substance: MAGNESIUM HYDROXIDE
     Route: 049
  14. INFLIXIMAB [Suspect]
     Active Substance: INFLIXIMAB
     Route: 042
  15. ADVAIR DISKUS [Concomitant]
     Active Substance: FLUTICASONE PROPIONATE\SALMETEROL XINAFOATE
     Route: 055
  16. INFLIXIMAB [Suspect]
     Active Substance: INFLIXIMAB
     Route: 042
  17. INFLIXIMAB [Suspect]
     Active Substance: INFLIXIMAB
     Route: 042
  18. ADVAIR DISKUS [Concomitant]
     Active Substance: FLUTICASONE PROPIONATE\SALMETEROL XINAFOATE
     Route: 055

REACTIONS (2)
  - Chronic obstructive pulmonary disease [Recovered/Resolved]
  - Acute respiratory failure [None]

NARRATIVE: CASE EVENT DATE: 20040911
